FAERS Safety Report 8471715 (Version 3)
Quarter: 2013Q4

REPORT INFORMATION
  Report Type: Spontaneous
  Country: FR (occurrence: FR)
  Receive Date: 20120322
  Receipt Date: 20131129
  Transmission Date: 20140711
  Serious: Yes (Hospitalization)
  Sender: FDA-Public Use
  Company Number: FR-SANOFI-AVENTIS-2012SA018505

PATIENT
  Age: 86 Year
  Sex: Female
  Weight: 74 kg

DRUGS (4)
  1. CORDARONE [Suspect]
     Indication: ATRIAL FIBRILLATION
     Dosage: STRENGTH: 200 MG
     Route: 048
     Dates: end: 20110624
  2. MULTAQ [Suspect]
     Indication: ATRIAL FIBRILLATION
     Dosage: STRENGTH: 400 MG
     Route: 048
     Dates: start: 20110624, end: 20111003
  3. PREVISCAN [Concomitant]
     Route: 048
  4. LODOZ [Concomitant]
     Route: 048

REACTIONS (1)
  - Lung disorder [Not Recovered/Not Resolved]
